FAERS Safety Report 21973897 (Version 2)
Quarter: 2023Q1

REPORT INFORMATION
  Report Type: Spontaneous
  Country: US (occurrence: US)
  Receive Date: 20230209
  Receipt Date: 20230323
  Transmission Date: 20230418
  Serious: Yes (Other)
  Sender: FDA-Public Use
  Company Number: US-BRISTOL-MYERS SQUIBB COMPANY-2023-018863

PATIENT
  Age: 65 Year
  Sex: Male

DRUGS (1)
  1. REVLIMID [Suspect]
     Active Substance: LENALIDOMIDE
     Indication: Plasma cell myeloma
     Dosage: TAKE ONE CAPSULE BY MOUTH EVERY OTHER DAYS FOR 28 DAYS
     Route: 048
     Dates: start: 20110829

REACTIONS (4)
  - Skin cancer [Recovered/Resolved]
  - Off label use [Unknown]
  - Fall [Recovering/Resolving]
  - Skin abrasion [Recovering/Resolving]
